FAERS Safety Report 16808361 (Version 1)
Quarter: 2019Q3

REPORT INFORMATION
  Report Type: Spontaneous
  Country: US (occurrence: US)
  Receive Date: 20190724
  Receipt Date: 20190724
  Transmission Date: 20191005
  Serious: No
  Sender: FDA-Public Use
  Company Number: None

PATIENT

DRUGS (2)
  1. COAGULATION FACTOR XA (RECOMBINANT), INACTIVATED-ZHZO [Suspect]
     Active Substance: ANDEXANET ALFA
  2. ANDEXXA [Suspect]
     Active Substance: ANDEXANET ALFA

REACTIONS (1)
  - Product label confusion [None]
